FAERS Safety Report 5352695-6 (Version None)
Quarter: 2007Q2

REPORT INFORMATION
  Report Type: 
  Country: None (occurrence: None)
  Receive Date: 20070611
  Receipt Date: 20070605
  Transmission Date: 20071010
  Serious: Yes (Death)
  Sender: FDA-Public Use
  Company Number: US-BAXTER-2007BH002664

PATIENT
  Age: 1 Day
  Sex: Male
  Weight: 2 kg

DRUGS (4)
  1. HEPARIN SODIUM [Suspect]
     Indication: DRUG EXPOSURE DURING PREGNANCY
     Dosage: DOSE UNIT:UNKNOWN
     Route: 064
     Dates: start: 20070130, end: 20070218
  2. AMPICILLIN [Concomitant]
     Route: 042
     Dates: start: 20070221
  3. GENTAMICIN [Concomitant]
     Route: 042
     Dates: start: 20070221
  4. OXYGEN [Concomitant]

REACTIONS (4)
  - CIRCULATORY COLLAPSE [None]
  - GROUP B STREPTOCOCCUS NEONATAL SEPSIS [None]
  - PNEUMONIA [None]
  - PULMONARY HYPERTENSION [None]
